FAERS Safety Report 6697145-2 (Version None)
Quarter: 2010Q2

REPORT INFORMATION
  Report Type: 
  Country: None (occurrence: None)
  Receive Date: 20100426
  Receipt Date: 20100416
  Transmission Date: 20101027
  Serious: Yes (Hospitalization)
  Sender: FDA-Public Use
  Company Number: KR-PFIZER INC-2008017411

PATIENT
  Age: 66 Year
  Sex: Male
  Weight: 64 kg

DRUGS (33)
  1. SUNITINIB MALATE [Suspect]
     Indication: COLORECTAL CANCER
     Dosage: UNK
     Route: 048
     Dates: start: 20080109, end: 20080205
  2. IRINOTECAN HCL [Suspect]
     Indication: COLORECTAL CANCER
     Dosage: 180 MG/M2, EVERY 3 WEEKS
     Route: 042
     Dates: start: 20080109
  3. *FLUOROURACIL [Suspect]
     Indication: COLORECTAL CANCER
     Dosage: 400 MG/M2, EVERY 3 WEEKS
     Route: 040
     Dates: start: 20080109
  4. *FLUOROURACIL [Suspect]
     Dosage: 2400 MG/M2, EVERY 3 WEEKS
     Route: 041
     Dates: start: 20080109
  5. *CALCIUM FOLINATE [Suspect]
     Indication: COLORECTAL CANCER
     Dosage: 400 MG/M2, EVERY 3 WEEKS
     Route: 042
     Dates: start: 20080109
  6. VOGLIBOSE [Concomitant]
     Dosage: 0.6 MG, 1X/DAY
     Route: 048
     Dates: start: 19830101
  7. GLICLAZIDE [Concomitant]
     Dosage: 240 MG, 1X/DAY
     Route: 048
     Dates: start: 19830101
  8. LINOLEIC ACID [Concomitant]
     Dosage: 80 MG, 1X/DAY
     Route: 048
     Dates: start: 20061201
  9. MECOBALAMIN [Concomitant]
     Dosage: 1 MG, 1X/DAY
     Route: 048
     Dates: start: 20061201
  10. REBAMIPIDE [Concomitant]
     Dosage: 200 MG, 1X/DAY
     Route: 048
     Dates: start: 20061201
  11. GINKGO BILOBA EXTRACT [Concomitant]
     Dosage: 160 MG, 1X/DAY
     Route: 048
     Dates: start: 20061201
  12. ACETYLSALICYLIC ACID [Concomitant]
     Dosage: 100 MG, 1X/DAY
     Route: 048
     Dates: start: 20061201
  13. CLOPIDOGREL [Concomitant]
     Dosage: 75 MG, 1X/DAY
     Route: 048
     Dates: start: 20061201
  14. VALSARTAN [Concomitant]
     Dosage: 80 MG, 1X/DAY
     Route: 048
     Dates: start: 20061201
  15. GABAPENTIN [Concomitant]
     Dosage: 800 MG, 1X/DAY
     Route: 048
     Dates: start: 20061201
  16. METOCLOPRAMIDE HYDROCHLORIDE [Concomitant]
     Dosage: 40 MG, 1X/DAY
     Route: 042
     Dates: start: 20080220, end: 20080222
  17. ONDANSETRON HYDROCHLORIDE [Concomitant]
     Dosage: 1.6 MG, 1X/DAY
     Route: 048
     Dates: start: 20080220, end: 20080222
  18. HARTMANN [Concomitant]
     Dosage: 500 MG, 1X/DAY
     Route: 042
     Dates: start: 20080220, end: 20080222
  19. SUCRALFATE [Concomitant]
     Dosage: 60 MG, 1X/DAY
     Route: 048
     Dates: start: 20080220, end: 20080222
  20. CALCIUM POLYSTYRENE SULFONATE [Concomitant]
     Dosage: 10 MG, 1X/DAY
     Route: 048
     Dates: start: 20080220, end: 20080222
  21. DEXAMETHASONE [Concomitant]
     Dosage: 5 MG, 1X/DAY
     Route: 042
     Dates: start: 20080220, end: 20080221
  22. FEXOFENADINE [Concomitant]
     Dosage: 1 TABLET, 1X/DAY
     Route: 048
     Dates: start: 20080220, end: 20080220
  23. CARNITINE HYDROCHLORIDE [Concomitant]
     Dosage: 100 MG, 1X/DAY
  24. CIMETIDINE [Concomitant]
     Dosage: 600 MG, 1X/DAY
     Route: 048
     Dates: start: 20080220, end: 20080222
  25. EPERISONE HYDROCHLORIDE [Concomitant]
     Dosage: 100 MG, 1X/DAY
     Route: 048
     Dates: start: 20080211, end: 20080219
  26. OXYTETRACYCLINE HYDROCHLORIDE [Concomitant]
     Dosage: 250 MG, 1X/DAY
     Route: 048
     Dates: start: 20080210, end: 20080210
  27. BETHANECHOL [Concomitant]
     Dosage: 25 MG, 1X/DAY
     Route: 048
     Dates: start: 20080210, end: 20080210
  28. FINASTERIDE [Concomitant]
     Dosage: 5 MG, 1X/DAY
     Route: 048
     Dates: start: 20080210, end: 20080210
  29. VITIS VINIFERA EXTRACT [Concomitant]
     Dosage: 100 MG, 1X/DAY
     Route: 048
     Dates: start: 20080125, end: 20080219
  30. NICERGOLINE [Concomitant]
     Dosage: 20 MG, 1X/DAY
     Route: 048
     Dates: start: 20080125, end: 20080219
  31. VACCINIUM MYRTILLUS [Concomitant]
     Dosage: 170 MG, 3X/DAY
     Route: 048
     Dates: start: 19830101
  32. METFORMIN HYDROCHLORIDE [Concomitant]
     Dosage: 1000 MG, 1X/DAY
     Route: 048
     Dates: start: 19830101
  33. OX BILE EXTRACT [Concomitant]
     Dosage: 50 MG, 1X/DAY

REACTIONS (1)
  - ACUTE MYOCARDIAL INFARCTION [None]
